FAERS Safety Report 21479328 (Version 1)
Quarter: 2022Q4

REPORT INFORMATION
  Report Type: Spontaneous
  Country: NL (occurrence: NL)
  Receive Date: 20221019
  Receipt Date: 20221019
  Transmission Date: 20230113
  Serious: Yes (Other)
  Sender: FDA-Public Use
  Company Number: NL-UCBSA-2022042660

PATIENT
  Age: 64 Year
  Sex: Female

DRUGS (5)
  1. BRIVIACT [Suspect]
     Active Substance: BRIVARACETAM
     Indication: Epilepsy
     Dosage: 3 DROP, ONCE DAILY (QD)
     Route: 048
     Dates: start: 20171001
  2. BRIVIACT [Suspect]
     Active Substance: BRIVARACETAM
     Dosage: 20 DROP, 3X/DAY (TID)
     Route: 048
  3. BRIVIACT [Suspect]
     Active Substance: BRIVARACETAM
     Dosage: 15 DROP, 3X/DAY (TID)
     Route: 048
  4. BRIVIACT [Suspect]
     Active Substance: BRIVARACETAM
     Dosage: 10 DROP, 3X/DAY (TID)
     Route: 048
  5. BRIVIACT [Suspect]
     Active Substance: BRIVARACETAM
     Dosage: 5 DROP, 2X/DAY (BID)
     Route: 048

REACTIONS (2)
  - Epilepsy [Recovering/Resolving]
  - Off label use [Unknown]

NARRATIVE: CASE EVENT DATE: 20171001
